FAERS Safety Report 9295946 (Version 1)
Quarter: 2013Q1

REPORT INFORMATION
  Report Type: Spontaneous
  Country: US (occurrence: None)
  Receive Date: 20121227
  Receipt Date: 20121227
  Transmission Date: 20140127
  Serious: No
  Sender: FDA-Public Use
  Company Number: PHEH2012US021709

PATIENT
  Age: 11 Year
  Sex: Female

DRUGS (5)
  1. AFINITOR [Suspect]
     Indication: TUBEROUS SCLEROSIS
     Route: 048
     Dates: start: 20120821
  2. DAYTRANA (METHYLPHENIDATE) [Concomitant]
  3. MELATONIN (MELATONIN) [Concomitant]
  4. RISPERIDONE (RISPERIDONE) [Concomitant]
  5. FELBATOL (FELBAMATE) [Concomitant]

REACTIONS (1)
  - Medication error [None]
